FAERS Safety Report 21128215 (Version 1)
Quarter: 2022Q3

REPORT INFORMATION
  Report Type: Spontaneous
  Country: US (occurrence: None)
  Receive Date: 20220725
  Receipt Date: 20220725
  Transmission Date: 20221027
  Serious: Yes (Life-Threatening, Disabling)
  Sender: FDA-Public Use
  Company Number: None

PATIENT
  Age: 38 Year
  Sex: Male
  Weight: 86.18 kg

DRUGS (2)
  1. INVEGA SUSTENNA [Suspect]
     Active Substance: PALIPERIDONE PALMITATE
  2. UNSPECIFIED INGREDIENT [Suspect]
     Active Substance: UNSPECIFIED INGREDIENT

REACTIONS (7)
  - Non-24-hour sleep-wake disorder [None]
  - Insomnia [None]
  - Memory impairment [None]
  - Bradyphrenia [None]
  - Disturbance in attention [None]
  - Cognitive disorder [None]
  - Product complaint [None]

NARRATIVE: CASE EVENT DATE: 20220205
